FAERS Safety Report 5800246-1 (Version None)
Quarter: 2008Q3

REPORT INFORMATION
  Report Type: 
  Country: None (occurrence: None)
  Receive Date: 20080703
  Receipt Date: 20080626
  Transmission Date: 20090109
  Serious: Yes (Other)
  Sender: FDA-Public Use
  Company Number: PHHY2008GB12634

PATIENT
  Age: 6 Year
  Sex: Male

DRUGS (2)
  1. TEGRETOL [Suspect]
     Dosage: 150 MG, BID
  2. TEGRETOL [Suspect]
     Dosage: 200 MG, BID

REACTIONS (2)
  - CONVULSION [None]
  - PETIT MAL EPILEPSY [None]
